FAERS Safety Report 9044729 (Version 1)
Quarter: 2013Q1

REPORT INFORMATION
  Report Type: Report from Study
  Country: US (occurrence: US)
  Receive Date: 20130130
  Receipt Date: 20130130
  Transmission Date: 20140127
  Serious: No
  Sender: FDA-Public Use
  Company Number: US-ABBOTT-12P-163-0961371-00

PATIENT
  Age: 61 Year
  Sex: Female

DRUGS (4)
  1. HUMIRA 40 MG/ 0.8 ML PRE-FILLED SYRINGE [Suspect]
     Indication: RHEUMATOID ARTHRITIS
     Dates: start: 20120501
  2. METHOTREXATE [Concomitant]
     Indication: RHEUMATOID ARTHRITIS
     Dosage: 4 PILLS WEEKLY
  3. PREDNISONE [Concomitant]
     Indication: RHEUMATOID ARTHRITIS
     Dosage: 1 PILL EVERY OTHER DAY
  4. ADVAIR [Concomitant]
     Indication: ASTHMA
     Dosage: ONCE DAILY

REACTIONS (3)
  - Injection site warmth [Recovering/Resolving]
  - Injection site erythema [Recovering/Resolving]
  - Injection site pruritus [Recovering/Resolving]
